FAERS Safety Report 22271756 (Version 1)
Quarter: 2023Q2

REPORT INFORMATION
  Report Type: Report from Study
  Country: US (occurrence: US)
  Receive Date: 20230502
  Receipt Date: 20230502
  Transmission Date: 20230722
  Serious: Yes (Hospitalization)
  Sender: FDA-Public Use
  Company Number: US-ABBVIE-4746281

PATIENT
  Sex: Female

DRUGS (1)
  1. HUMIRA [Suspect]
     Active Substance: ADALIMUMAB
     Indication: Crohn^s disease
     Dosage: CITRATE FREE/FORM STRENGTH: 40 MG
     Route: 058
     Dates: start: 20230220, end: 20230326

REACTIONS (4)
  - Enterovesical fistula [Recovering/Resolving]
  - Infection [Not Recovered/Not Resolved]
  - Pelvic inflammatory disease [Unknown]
  - Abdominal pain [Not Recovered/Not Resolved]
